FAERS Safety Report 5698286-9 (Version None)
Quarter: 2008Q2

REPORT INFORMATION
  Report Type: 
  Country: None (occurrence: None)
  Receive Date: 20080408
  Receipt Date: 20080311
  Transmission Date: 20081010
  Serious: No
  Sender: FDA-Public Use
  Company Number: US-BOEHRINGER INGELHEIM GMBH, GERMANY-2008-BP-03692BP

PATIENT
  Age: 36 Year
  Sex: Female

DRUGS (1)
  1. ZANTAC 150 [Suspect]
     Indication: DYSPEPSIA
     Route: 048
     Dates: start: 20080309, end: 20080310

REACTIONS (3)
  - CHROMATURIA [None]
  - FAECES DISCOLOURED [None]
  - URINE ODOUR ABNORMAL [None]
